FAERS Safety Report 9460066 (Version 1)
Quarter: 2013Q3

REPORT INFORMATION
  Report Type: Spontaneous
  Country: US (occurrence: None)
  Receive Date: 20130814
  Receipt Date: 20130814
  Transmission Date: 20140515
  Serious: Yes (Hospitalization)
  Sender: FDA-Public Use
  Company Number: None

PATIENT
  Age: 53 Year
  Sex: Female
  Weight: 80 kg

DRUGS (2)
  1. PRIVIGEN [Suspect]
     Indication: COMBINED IMMUNODEFICIENCY
     Dosage: 35 GRAM  MONTHLY  IV
     Route: 042
     Dates: start: 20130607
  2. PRIVIGEN [Suspect]
     Indication: COMBINED IMMUNODEFICIENCY
     Dosage: 35 GRAM  MONTHLY  IV
     Route: 042
     Dates: start: 20130607

REACTIONS (5)
  - Blood pressure increased [None]
  - Heart rate increased [None]
  - Rash [None]
  - Urticaria [None]
  - Urticaria [None]
